FAERS Safety Report 18861295 (Version 6)
Quarter: 2021Q2

REPORT INFORMATION
  Report Type: Report from Study
  Country: US (occurrence: US)
  Receive Date: 20210208
  Receipt Date: 20210619
  Transmission Date: 20210717
  Serious: No
  Sender: FDA-Public Use
  Company Number: NVSC2021US020981

PATIENT
  Sex: Male

DRUGS (1)
  1. ENTRESTO [Suspect]
     Active Substance: SACUBITRIL\VALSARTAN
     Indication: PRODUCT USED FOR UNKNOWN INDICATION
     Dosage: 200 MG, BID (97/103 MG)
     Route: 048
     Dates: start: 2020

REACTIONS (10)
  - Sneezing [Not Recovered/Not Resolved]
  - Ejection fraction [Unknown]
  - Blood potassium increased [Unknown]
  - Weight increased [Not Recovered/Not Resolved]
  - Eating disorder symptom [Unknown]
  - Dizziness [Unknown]
  - Hypersensitivity [Not Recovered/Not Resolved]
  - Swelling [Not Recovered/Not Resolved]
  - Decreased activity [Unknown]
  - Cough [Not Recovered/Not Resolved]
